FAERS Safety Report 4929610-X (Version None)
Quarter: 2006Q1

REPORT INFORMATION
  Report Type: 
  Country: None (occurrence: None)
  Receive Date: 20060224
  Receipt Date: 20060214
  Transmission Date: 20060701
  Serious: Yes (Death)
  Sender: FDA-Public Use
  Company Number: 2005130011

PATIENT
  Age: 61 Year
  Sex: Female

DRUGS (1)
  1. BEXTRA [Suspect]
     Indication: ILL-DEFINED DISORDER
     Dosage: 20 MG ORAL
     Route: 048
     Dates: start: 20041204, end: 20041216

REACTIONS (1)
  - MYOCARDIAL INFARCTION [None]
